FAERS Safety Report 15597747 (Version 2)
Quarter: 2018Q4

REPORT INFORMATION
  Report Type: Spontaneous
  Country: RS (occurrence: RS)
  Receive Date: 20181108
  Receipt Date: 20181213
  Transmission Date: 20190205
  Serious: Yes (Other)
  Sender: FDA-Public Use
  Company Number: RS-009507513-1810SRB009890

PATIENT
  Sex: Male
  Weight: 70 kg

DRUGS (5)
  1. VORICONAZOLE. [Suspect]
     Active Substance: VORICONAZOLE
     Dosage: UNK
     Dates: start: 20180918, end: 20181002
  2. NOXAFIL [Suspect]
     Active Substance: POSACONAZOLE
     Dosage: UNK
     Route: 048
     Dates: start: 20181003
  3. MICAFUNGIN. [Suspect]
     Active Substance: MICAFUNGIN SODIUM
     Dosage: UNK
     Dates: start: 20180718, end: 20180808
  4. NOXAFIL [Suspect]
     Active Substance: POSACONAZOLE
     Dosage: UNK
     Route: 048
     Dates: start: 20180808, end: 20180918
  5. MICAFUNGIN. [Suspect]
     Active Substance: MICAFUNGIN SODIUM
     Dosage: UNK
     Dates: start: 20181012

REACTIONS (6)
  - Oral candidiasis [Not Recovered/Not Resolved]
  - X-ray abnormal [Unknown]
  - BK virus infection [Unknown]
  - Cytomegalovirus infection [Unknown]
  - Treatment noncompliance [Unknown]
  - Aspergillus test [Unknown]

NARRATIVE: CASE EVENT DATE: 2018
